FAERS Safety Report 9484021 (Version 2)
Quarter: 2013Q3

REPORT INFORMATION
  Report Type: Spontaneous
  Country: CA (occurrence: CA)
  Receive Date: 20130828
  Receipt Date: 20130828
  Transmission Date: 20140515
  Serious: Yes (Other)
  Sender: FDA-Public Use
  Company Number: CA-AMGEN-KDL281462

PATIENT
  Age: 57 Year
  Sex: Female

DRUGS (5)
  1. ENBREL [Suspect]
     Indication: RHEUMATOID ARTHRITIS
     Dosage: UNK UNK, QWK
     Route: 065
     Dates: start: 20080316, end: 20090923
  2. ZOPICLONE [Concomitant]
     Dosage: 15 MG, UNK
  3. OXYCODONE HYDROCHLORIDE [Concomitant]
     Dosage: UNK UNK, UNK
  4. METHOTREXATE [Concomitant]
     Dosage: UNK UNK, UNK
     Route: 058
  5. HYDROXYCHLOROQUINE SULFATE [Concomitant]

REACTIONS (7)
  - Pancreatic mass [Unknown]
  - Somnambulism [Not Recovered/Not Resolved]
  - Nervousness [Not Recovered/Not Resolved]
  - Feeling abnormal [Not Recovered/Not Resolved]
  - Sleep disorder [Not Recovered/Not Resolved]
  - Dysphonia [Not Recovered/Not Resolved]
  - Abdominal pain [Unknown]
